FAERS Safety Report 10090316 (Version 1)
Quarter: 2014Q2

REPORT INFORMATION
  Report Type: Report from Study
  Country: AU (occurrence: AU)
  Receive Date: 20140421
  Receipt Date: 20140421
  Transmission Date: 20141212
  Serious: Yes (Hospitalization)
  Sender: FDA-Public Use
  Company Number: AU-SA-2014SA044784

PATIENT
  Age: 89 Year
  Sex: Male

DRUGS (2)
  1. LANTUS [Suspect]
     Indication: PRODUCT USED FOR UNKNOWN INDICATION
     Route: 065
     Dates: start: 20130801
  2. CLIKSTAR [Concomitant]

REACTIONS (1)
  - Depression [Recovering/Resolving]
